FAERS Safety Report 14065406 (Version 1)
Quarter: 2017Q4

REPORT INFORMATION
  Report Type: Spontaneous
  Country: US (occurrence: US)
  Receive Date: 20171009
  Receipt Date: 20171009
  Transmission Date: 20180321
  Serious: No
  Sender: FDA-Public Use
  Company Number: US-BAYER-2017-184263

PATIENT
  Age: 64 Year
  Sex: Male

DRUGS (1)
  1. REGORAFENIB [Suspect]
     Active Substance: REGORAFENIB
     Dosage: 80 MG EVERYDAY FOR 21 DAYS THEN 7 DAYS OFF AND REPEAT
     Route: 048

REACTIONS (2)
  - Off label use [None]
  - Blood pressure decreased [Recovered/Resolved]

NARRATIVE: CASE EVENT DATE: 20170918
